FAERS Safety Report 12452720 (Version 3)
Quarter: 2016Q3

REPORT INFORMATION
  Report Type: Spontaneous
  Country: CN (occurrence: CN)
  Receive Date: 20160609
  Receipt Date: 20160707
  Transmission Date: 20161109
  Serious: Yes (Other)
  Sender: FDA-Public Use
  Company Number: CN-VALIDUS PHARMACEUTICALS LLC-CN-2016VAL002044

PATIENT
  Sex: Male

DRUGS (1)
  1. LOTENSIN [Suspect]
     Active Substance: BENAZEPRIL HYDROCHLORIDE
     Indication: BLOOD PRESSURE MANAGEMENT
     Dosage: 10 MG, UNK
     Route: 048
     Dates: start: 20160523

REACTIONS (3)
  - Blood pressure systolic increased [Recovering/Resolving]
  - Drug ineffective [Unknown]
  - Discomfort [Unknown]

NARRATIVE: CASE EVENT DATE: 20160525
